FAERS Safety Report 8562439-2 (Version None)
Quarter: 2012Q3

REPORT INFORMATION
  Report Type: 
  Country: None (occurrence: None)
  Receive Date: 20120802
  Receipt Date: 20120709
  Transmission Date: 20120928
  Serious: No
  Sender: FDA-Public Use
  Company Number: US-AMGEN-USASP2011015529

PATIENT
  Age: 30 Year
  Sex: Female
  Weight: 63.1 kg

DRUGS (6)
  1. TOPAMAX [Concomitant]
     Dosage: 100 MG, BID
     Route: 048
  2. FOLIC ACID [Concomitant]
     Dosage: 2 MG, QD
     Route: 048
  3. VITAMIN D [Concomitant]
     Dosage: 1000 MG, QD
     Route: 048
  4. ENBREL [Suspect]
     Indication: RHEUMATOID ARTHRITIS
     Dosage: 50 MG, QWK
     Route: 058
     Dates: start: 20110125, end: 20110401
  5. METHOTREXATE [Concomitant]
     Dosage: 20 MG, QWK
     Route: 048
  6. NUVARING [Concomitant]

REACTIONS (7)
  - INJECTION SITE REACTION [None]
  - MYALGIA [None]
  - ABDOMINAL PAIN [None]
  - INJECTION SITE ERYTHEMA [None]
  - DIARRHOEA [None]
  - FREQUENT BOWEL MOVEMENTS [None]
  - INJECTION SITE PRURITUS [None]
